FAERS Safety Report 10283037 (Version 4)
Quarter: 2014Q3

REPORT INFORMATION
  Report Type: Spontaneous
  Country: US (occurrence: US)
  Receive Date: 20140708
  Receipt Date: 20140904
  Transmission Date: 20150326
  Serious: Yes (Hospitalization, Other)
  Sender: FDA-Public Use
  Company Number: US-UCBSA-121778

PATIENT
  Age: 67 Year
  Sex: Female
  Weight: 79.37 kg

DRUGS (15)
  1. POTASSIUM [Concomitant]
     Active Substance: POTASSIUM
     Dosage: UNK, ONCE DAILY (QD), 1 TEASPOON
  2. AMBIEN [Concomitant]
     Active Substance: ZOLPIDEM TARTRATE
     Indication: INSOMNIA
     Dosage: UNK, AS NEEDED (PRN)
  3. OXYCODONE [Concomitant]
     Active Substance: OXYCODONE
     Indication: PAIN
     Dosage: UNK, AS NEEDED (PRN)
  4. VIMPAT [Suspect]
     Active Substance: LACOSAMIDE
     Dosage: 50MG/5DAY
     Dates: start: 2014, end: 2014
  5. KEPPRA [Suspect]
     Active Substance: LEVETIRACETAM
     Indication: CONVULSION
     Dosage: UNK
     Dates: start: 2014, end: 2014
  6. FAMOTIDINE. [Concomitant]
     Active Substance: FAMOTIDINE
     Dosage: UNK, ONCE DAILY (QD)
  7. COUMADIN [Concomitant]
     Active Substance: WARFARIN SODIUM
     Indication: ANTICOAGULANT THERAPY
     Dosage: UNK, ONCE DAILY (QD)
  8. VIMPAT [Suspect]
     Active Substance: LACOSAMIDE
     Indication: CONVULSION
     Dosage: 100MG/2DAY
     Dates: start: 2014, end: 2014
  9. LACTULOSE. [Concomitant]
     Active Substance: LACTULOSE
     Dosage: UNK, 2X/DAY (BID), 4 TEASPOONS
  10. ALAVERT ALLERGY [Concomitant]
     Active Substance: LORATADINE
     Dosage: UNK, ONCE DAILY (QD)
  11. LISINOPRIL. [Concomitant]
     Active Substance: LISINOPRIL
     Dosage: UNK, AS NEEDED (PRN)
  12. VIMPAT [Suspect]
     Active Substance: LACOSAMIDE
     Dosage: 100MG IN AM AND 150 IN PM
     Dates: start: 2014
  13. PROMETHAZINE [Concomitant]
     Active Substance: PROMETHAZINE\PROMETHAZINE HYDROCHLORIDE
     Dosage: UNK
  14. XANAX [Concomitant]
     Active Substance: ALPRAZOLAM
     Indication: RESTLESSNESS
     Dosage: UNK, AS NEEDED (PRN)
  15. ADVIL [Concomitant]
     Active Substance: IBUPROFEN
     Indication: PAIN
     Dosage: UNK, AS NEEDED (PRN)

REACTIONS (10)
  - Convulsion [Not Recovered/Not Resolved]
  - Wrong technique in drug usage process [Unknown]
  - Somnolence [Not Recovered/Not Resolved]
  - Thrombosis [Not Recovered/Not Resolved]
  - Hepatic cirrhosis [Not Recovered/Not Resolved]
  - Coma [Unknown]
  - Urinary tract infection [Recovering/Resolving]
  - Hallucination [Recovering/Resolving]
  - Generalised tonic-clonic seizure [Recovered/Resolved]
  - Decreased appetite [Recovering/Resolving]

NARRATIVE: CASE EVENT DATE: 2014
